FAERS Safety Report 9341699 (Version 3)
Quarter: 2013Q3

REPORT INFORMATION
  Report Type: Spontaneous
  Country: US (occurrence: US)
  Receive Date: 20130611
  Receipt Date: 20130813
  Transmission Date: 20140515
  Serious: No
  Sender: FDA-Public Use
  Company Number: US-PFIZER INC-2013173645

PATIENT
  Age: 80 Year
  Sex: Male

DRUGS (2)
  1. INLYTA [Suspect]
     Indication: MALIGNANT URINARY TRACT NEOPLASM
     Dosage: 5 MG, 1X/DAY
     Dates: start: 20121028
  2. INLYTA [Suspect]
     Dosage: 1 MG - TAKE 5 TABLETS, 2X/DAY
     Route: 048
     Dates: start: 20121031

REACTIONS (2)
  - Dysphonia [Unknown]
  - Haemoptysis [Unknown]
